FAERS Safety Report 11911766 (Version 1)
Quarter: 2016Q1

REPORT INFORMATION
  Report Type: Spontaneous
  Country: FR (occurrence: FR)
  Receive Date: 20160112
  Receipt Date: 20160112
  Transmission Date: 20160526
  Serious: Yes (Other)
  Sender: FDA-Public Use
  Company Number: FR-HQ SPECIALTY-FR-2015INT000736

PATIENT
  Age: 86 Year
  Sex: Female

DRUGS (1)
  1. PACLITAXEL. [Suspect]
     Active Substance: PACLITAXEL
     Indication: PRODUCT USED FOR UNKNOWN INDICATION
     Dosage: UNK

REACTIONS (8)
  - Pain in extremity [Unknown]
  - Bacteraemia [Unknown]
  - Arthropathy [Unknown]
  - Inflammation [Unknown]
  - Leukocytosis [Unknown]
  - Device related infection [Recovered/Resolved]
  - Pyrexia [Recovering/Resolving]
  - Arthralgia [Unknown]
